FAERS Safety Report 12048068 (Version 1)
Quarter: 2016Q1

REPORT INFORMATION
  Report Type: Report from Study
  Country: US (occurrence: US)
  Receive Date: 20160208
  Receipt Date: 20160208
  Transmission Date: 20160526
  Serious: No
  Sender: FDA-Public Use
  Company Number: US-ABBVIE-15P-163-1373362-00

PATIENT
  Sex: Female

DRUGS (4)
  1. GROWTH HORMONE [Concomitant]
     Active Substance: SOMATROPIN
     Indication: PRODUCT USED FOR UNKNOWN INDICATION
  2. ANTIDIURETIC [Concomitant]
     Indication: PRODUCT USED FOR UNKNOWN INDICATION
  3. HUMIRA [Suspect]
     Active Substance: ADALIMUMAB
     Indication: ANKYLOSING SPONDYLITIS
     Route: 065
  4. HYDROCORTISONE. [Concomitant]
     Active Substance: HYDROCORTISONE
     Indication: PRODUCT USED FOR UNKNOWN INDICATION

REACTIONS (6)
  - Injection site haemorrhage [Unknown]
  - Influenza [Recovered/Resolved]
  - Skin infection [Recovered/Resolved]
  - Injection site bruising [Unknown]
  - Drug ineffective [Unknown]
  - Injection site pain [Recovered/Resolved]
